FAERS Safety Report 9496864 (Version 1)
Quarter: 2013Q3

REPORT INFORMATION
  Report Type: Spontaneous
  Country: GB (occurrence: GB)
  Receive Date: 20130904
  Receipt Date: 20130904
  Transmission Date: 20140515
  Serious: Yes (Hospitalization)
  Sender: FDA-Public Use
  Company Number: GB-ASTRAZENECA-2013SE65814

PATIENT
  Age: 26 Year
  Sex: Female

DRUGS (7)
  1. BUDESONIDE [Suspect]
     Route: 048
  2. REMICADE [Suspect]
     Indication: CROHN^S DISEASE
     Dosage: ONCE EVERY 8 WEEKS
     Route: 042
  3. OMEPRAZOLE [Concomitant]
  4. ORAMORPH [Concomitant]
  5. ZOMORPH [Concomitant]
  6. LAXATIVES [Concomitant]
  7. DIURETICS [Concomitant]

REACTIONS (1)
  - Pancreatitis [Unknown]
